FAERS Safety Report 4665048-0 (Version None)
Quarter: 2005Q2

REPORT INFORMATION
  Report Type: 
  Country: None (occurrence: None)
  Receive Date: 20050518
  Receipt Date: 20050415
  Transmission Date: 20051028
  Serious: Yes (Other)
  Sender: FDA-Public Use
  Company Number: PHBS2005CH05343

PATIENT
  Age: 75 Year
  Sex: Male

DRUGS (8)
  1. ZOMETA [Suspect]
     Indication: OSTEOPOROSIS
     Dosage: 4 MG, QMO
     Route: 042
     Dates: start: 20030301, end: 20030901
  2. BLOPRESS [Concomitant]
     Indication: HYPERTENSION
     Route: 065
  3. INDERAL [Concomitant]
     Indication: HYPERTENSION
     Route: 065
  4. ASPIRIN [Concomitant]
     Route: 065
  5. ALKERAN [Concomitant]
     Indication: MULTIPLE MYELOMA
     Route: 065
     Dates: start: 20011201, end: 20021201
  6. AREDIA [Suspect]
     Indication: OSTEOPOROSIS
     Dosage: 90 MG, QMO
     Route: 042
     Dates: start: 20011201, end: 20030301
  7. AREDIA [Suspect]
     Dosage: 90 MG, QMO
     Dates: start: 20030901
  8. PREDNISONE [Concomitant]
     Route: 065

REACTIONS (5)
  - ASEPTIC NECROSIS BONE [None]
  - OSTEITIS [None]
  - PRIMARY SEQUESTRUM [None]
  - SEQUESTRECTOMY [None]
  - TOOTH EXTRACTION [None]
